FAERS Safety Report 14879186 (Version 1)
Quarter: 2018Q2

REPORT INFORMATION
  Report Type: Spontaneous
  Country: US (occurrence: US)
  Receive Date: 20180425
  Receipt Date: 20180425
  Transmission Date: 20180711
  Serious: Yes (Other)
  Sender: FDA-Public Use
  Company Number: None

PATIENT
  Age: 54 Year
  Sex: Female
  Weight: 60.75 kg

DRUGS (7)
  1. FLEXERIL [Concomitant]
     Active Substance: CYCLOBENZAPRINE HYDROCHLORIDE
  2. VENTOLIN [Concomitant]
     Active Substance: ALBUTEROL SULFATE
  3. NATURE^S BOUNTY MULTI VITAMIN [Concomitant]
  4. GENERIC HYDROCODONE/ACETAMINOPHEN 10/325 GENERIC FOR NORCO [Suspect]
     Active Substance: ACETAMINOPHEN\HYDROCODONE
     Indication: FRACTURE PAIN
     Dosage: ?          QUANTITY:1 TABLET(S);?
     Route: 048
     Dates: start: 20180420, end: 20180420
  5. ZOLOFT [Concomitant]
     Active Substance: SERTRALINE HYDROCHLORIDE
  6. PROGESTERONE. [Concomitant]
     Active Substance: PROGESTERONE
  7. ESTRADIOL. [Concomitant]
     Active Substance: ESTRADIOL

REACTIONS (4)
  - Adverse drug reaction [None]
  - Mobility decreased [None]
  - Drug ineffective [None]
  - Loss of personal independence in daily activities [None]

NARRATIVE: CASE EVENT DATE: 20180420
